FAERS Safety Report 9657399 (Version 1)
Quarter: 2013Q4

REPORT INFORMATION
  Report Type: Report from Study
  Country: CA (occurrence: CA)
  Receive Date: 20131030
  Receipt Date: 20131030
  Transmission Date: 20140711
  Serious: Yes (Hospitalization)
  Sender: FDA-Public Use
  Company Number: CA-ROCHE-1291469

PATIENT
  Age: 46 Year
  Sex: Male
  Weight: 85 kg

DRUGS (71)
  1. MYCOPHENOLATE MOFETIL [Suspect]
     Indication: PRODUCT USED FOR UNKNOWN INDICATION
     Dosage: THERAPY DURATION: 1 DAY
     Route: 042
  2. MYCOPHENOLATE MOFETIL [Suspect]
     Dosage: THERAPY DURATION: 1 DAY
     Route: 042
  3. MYCOPHENOLATE MOFETIL [Suspect]
     Dosage: THERAPY DURATION: 1 DAY
     Route: 042
  4. MYCOPHENOLATE MOFETIL [Suspect]
     Dosage: THERAPY DURATION: 1 DAY
     Route: 042
  5. MYCOPHENOLATE MOFETIL [Suspect]
     Dosage: THERAPY DURATION: 1 DAY
     Route: 050
  6. MYCOPHENOLATE MOFETIL [Suspect]
     Dosage: THERAPY DURATION: 1 DAY
     Route: 050
  7. MYCOPHENOLATE MOFETIL [Suspect]
     Dosage: THERAPY DURATION: 1 DAY
     Route: 048
  8. MYCOPHENOLATE MOFETIL [Suspect]
     Dosage: THERAPY DURATION: 1 DAY
     Route: 048
  9. MYCOPHENOLATE MOFETIL [Suspect]
     Dosage: THERAPY DURATION: 1 DAY
     Route: 048
  10. MYCOPHENOLATE MOFETIL [Suspect]
     Dosage: THERAPY DURATION: 1 DAY
     Route: 048
  11. MYCOPHENOLATE MOFETIL [Suspect]
     Route: 048
  12. MYCOPHENOLATE MOFETIL [Suspect]
     Route: 048
  13. MYCOPHENOLATE MOFETIL [Suspect]
     Route: 048
  14. MYCOPHENOLATE MOFETIL [Suspect]
     Route: 048
  15. MYCOPHENOLATE MOFETIL [Suspect]
     Dosage: THERAPY DURATION: 1 DAY
     Route: 048
  16. MYCOPHENOLATE MOFETIL [Suspect]
     Route: 048
  17. MYCOPHENOLATE MOFETIL [Suspect]
     Dosage: THERAPY DURATION: 1 DAY
     Route: 048
  18. MYCOPHENOLATE MOFETIL [Suspect]
     Route: 048
  19. MYCOPHENOLATE MOFETIL [Suspect]
     Dosage: THERAPY DURATION: 1 DAY
     Route: 048
  20. PREDNISONE [Suspect]
     Indication: PRODUCT USED FOR UNKNOWN INDICATION
     Dosage: THERAPY DURATION: 1.0 DAYS
     Route: 048
  21. PREDNISONE [Suspect]
     Dosage: THERAPY DURATION: 1.0 DAYS
     Route: 048
  22. PREDNISONE [Suspect]
     Dosage: THERAPY DURATION: 1.0 DAYS
     Route: 048
  23. PREDNISONE [Suspect]
     Route: 048
  24. PREDNISONE [Suspect]
     Route: 048
  25. PREDNISONE [Suspect]
     Route: 048
  26. PREDNISONE [Suspect]
     Route: 048
  27. PREDNISONE [Suspect]
     Route: 048
  28. PROGRAF [Suspect]
     Indication: PRODUCT USED FOR UNKNOWN INDICATION
     Route: 065
  29. RAPAMUNE [Suspect]
     Indication: PRODUCT USED FOR UNKNOWN INDICATION
     Route: 065
  30. DACLIZUMAB [Suspect]
     Indication: PRODUCT USED FOR UNKNOWN INDICATION
     Route: 042
  31. DACLIZUMAB [Suspect]
     Route: 042
  32. HYDROCORTISONE SODIUM SUCCINATE [Suspect]
     Indication: PRODUCT USED FOR UNKNOWN INDICATION
     Route: 042
  33. CYCLOSPORINE [Suspect]
     Indication: PRODUCT USED FOR UNKNOWN INDICATION
     Dosage: THERAPY DURATION: 1.0 DAYS
     Route: 048
  34. CYCLOSPORINE [Suspect]
     Dosage: THERAPY DURATION: 1.0 DAYS
     Route: 048
  35. CYCLOSPORINE [Suspect]
     Dosage: THERAPY DURATION: 1.0 DAYS
     Route: 048
  36. CYCLOSPORINE [Suspect]
     Route: 048
  37. CYCLOSPORINE [Suspect]
     Route: 048
  38. CYCLOSPORINE [Suspect]
     Route: 048
  39. CYCLOSPORINE [Suspect]
     Route: 048
  40. CYCLOSPORINE [Suspect]
     Route: 048
  41. CYCLOSPORINE [Suspect]
     Route: 048
  42. CYCLOSPORINE [Suspect]
     Route: 048
  43. CYCLOSPORINE [Suspect]
     Dosage: THERAPY DURATION: 1.0 DAYS
     Route: 048
  44. CYCLOSPORINE [Suspect]
     Dosage: THERAPY DURATION: 3.0 DAYS
     Route: 048
  45. CYCLOSPORINE [Suspect]
     Dosage: THERAPY DURATION: 1.0 DAYS
     Route: 048
  46. CYCLOSPORINE [Suspect]
     Dosage: THERAPY DURATION: 4.0 DAYS
     Route: 048
  47. METHYLPREDNISOLONE SODIUM SUCCINATE [Suspect]
     Indication: PRODUCT USED FOR UNKNOWN INDICATION
     Dosage: THERAPY DURATION: 1.0 DAYS
     Route: 042
  48. METHYLPREDNISOLONE SODIUM SUCCINATE [Suspect]
     Route: 042
  49. METHYLPREDNISOLONE SODIUM SUCCINATE [Suspect]
     Dosage: THERAPY DURATION: 1.0 DAYS
     Route: 042
  50. METHYLPREDNISOLONE SODIUM SUCCINATE [Suspect]
     Dosage: THERAPY DURATION: 1.0 DAYS
     Route: 042
  51. METHYLPREDNISOLONE SODIUM SUCCINATE [Suspect]
     Dosage: THERAPY DURATION: 1.0 DAYS
     Route: 042
  52. METHYLPREDNISOLONE SODIUM SUCCINATE [Suspect]
     Dosage: THERAPY DURATION: 1.0 DAYS
     Route: 042
  53. METHYLPREDNISOLONE SODIUM SUCCINATE [Suspect]
     Dosage: THERAPY DURATION: 1.0 DAYS
     Route: 042
  54. METHYLPREDNISOLONE SODIUM SUCCINATE [Suspect]
     Dosage: THERAPY DURATION: 1.0 DAYS
     Route: 042
  55. METHYLPREDNISOLONE SODIUM SUCCINATE [Suspect]
     Dosage: THERAPY DURATION: 1.0 DAYS
     Route: 042
  56. METHYLPREDNISOLONE SODIUM SUCCINATE [Suspect]
     Dosage: THERAPY DURATION: 2.0 DAYS
     Route: 042
  57. ACEBUTOLOL [Concomitant]
     Route: 065
  58. ACETAMINOPHEN [Concomitant]
  59. AMLODIPINE [Concomitant]
     Route: 065
  60. CLONAZEPAM [Concomitant]
     Route: 065
  61. CYANOCOBALAMIN [Concomitant]
  62. DIMENHYDRINATE [Concomitant]
  63. ENALAPRIL [Concomitant]
     Route: 065
  64. FOLIC ACID [Concomitant]
  65. FUROSEMIDE [Concomitant]
  66. LORAZEPAM [Concomitant]
  67. MAGNESIUM SULFATE [Concomitant]
  68. MYCOSTATIN [Concomitant]
  69. RANITIDINE [Concomitant]
  70. RISEDRONATE SODIUM [Concomitant]
  71. SEPTRA [Concomitant]
     Route: 042

REACTIONS (5)
  - Blood creatinine increased [Not Recovered/Not Resolved]
  - Hydronephrosis [Not Recovered/Not Resolved]
  - Leukopenia [Not Recovered/Not Resolved]
  - Lymphocele [Not Recovered/Not Resolved]
  - Ureteric stenosis [Not Recovered/Not Resolved]
